FAERS Safety Report 24298193 (Version 1)
Quarter: 2024Q3

REPORT INFORMATION
  Report Type: Spontaneous
  Country: DE (occurrence: DE)
  Receive Date: 20240909
  Receipt Date: 20240909
  Transmission Date: 20241016
  Serious: Yes (Disabling, Other)
  Sender: PFIZER
  Company Number: DE-DCGMA-24203830

PATIENT
  Age: 15 Year
  Sex: Female
  Weight: 39 kg

DRUGS (42)
  1. HYDROCORTISONE [Suspect]
     Active Substance: HYDROCORTISONE\HYDROCORTISONE ACETATE
     Indication: Acute lymphocytic leukaemia
     Dosage: 30-15-15 MG
     Route: 042
     Dates: start: 20240201, end: 20240205
  2. PREDNISOLONE SODIUM PHOSPHATE [Suspect]
     Active Substance: PREDNISOLONE SODIUM PHOSPHATE
     Indication: Acute lymphocytic leukaemia
     Dosage: 81 MG
     Route: 048
     Dates: start: 20231122, end: 20231220
  3. HYDROCORTISONE [Suspect]
     Active Substance: HYDROCORTISONE\HYDROCORTISONE ACETATE
     Indication: Acute lymphocytic leukaemia
     Dosage: 15 MG
     Route: 048
     Dates: start: 20240210
  4. HYDROCORTISONE [Suspect]
     Active Substance: HYDROCORTISONE\HYDROCORTISONE ACETATE
     Dosage: 60 MG
     Route: 048
     Dates: start: 20240120, end: 20240201
  5. HYDROCORTISONE [Suspect]
     Active Substance: HYDROCORTISONE\HYDROCORTISONE ACETATE
     Dosage: 60 MG
     Route: 048
     Dates: start: 20240205, end: 20240210
  6. DEXAMETHASONE [Suspect]
     Active Substance: DEXAMETHASONE
     Indication: Acute lymphocytic leukaemia
     Dosage: 13 MG
     Route: 048
     Dates: start: 20240108, end: 20240115
  7. PREDNISOLONE [Suspect]
     Active Substance: PREDNISOLONE
     Indication: Acute lymphocytic leukaemia
     Dosage: 81 MG
     Route: 042
     Dates: start: 20231114, end: 20231121
  8. PEG/L-ASPARAGINASE [Concomitant]
     Active Substance: PEGASPARGASE
     Dosage: 3150 IU
     Dates: start: 20240108
  9. PIPERACILLIN SODIUM\TAZOBACTAM SODIUM [Concomitant]
     Active Substance: PIPERACILLIN SODIUM\TAZOBACTAM SODIUM
     Dosage: UNK
  10. CIPROFLOXACIN [Concomitant]
     Active Substance: CIPROFLOXACIN
     Dosage: UNK
  11. OMEPRAZOLE [Concomitant]
     Active Substance: OMEPRAZOLE
     Dosage: UNK
  12. FOSFOMYCIN SODIUM [Concomitant]
     Active Substance: FOSFOMYCIN SODIUM
     Dosage: UNK
  13. CYTARABINE [Concomitant]
     Active Substance: CYTARABINE
     Dosage: 96 MG
     Route: 042
     Dates: start: 20240104
  14. CYTARABINE [Concomitant]
     Active Substance: CYTARABINE
     Dosage: 96 MG
     Route: 042
     Dates: start: 20231229
  15. CYTARABINE [Concomitant]
     Active Substance: CYTARABINE
     Dosage: 96 MG
     Route: 042
     Dates: start: 20231227
  16. CYTARABINE [Concomitant]
     Active Substance: CYTARABINE
     Dosage: 96 MG
     Route: 042
     Dates: start: 20231230
  17. CYTARABINE [Concomitant]
     Active Substance: CYTARABINE
     Dosage: 96 MG
     Route: 042
     Dates: start: 20240106
  18. CYTARABINE [Concomitant]
     Active Substance: CYTARABINE
     Dosage: 96 MG
     Route: 042
     Dates: start: 20240103
  19. CYTARABINE [Concomitant]
     Active Substance: CYTARABINE
     Dosage: 96 MG
     Route: 042
     Dates: start: 20231228
  20. CYTARABINE [Concomitant]
     Active Substance: CYTARABINE
     Dosage: 96 MG
     Route: 042
     Dates: start: 20240105
  21. METHOTREXATE SODIUM [Concomitant]
     Active Substance: METHOTREXATE SODIUM
     Dosage: 12 MG
     Dates: start: 20240105
  22. METHOTREXATE SODIUM [Concomitant]
     Active Substance: METHOTREXATE SODIUM
     Dosage: 12 MG
     Dates: start: 20231221
  23. METHOTREXATE SODIUM [Concomitant]
     Active Substance: METHOTREXATE SODIUM
     Dosage: 12 MG
     Dates: start: 20231114
  24. METHOTREXATE SODIUM [Concomitant]
     Active Substance: METHOTREXATE SODIUM
     Dosage: 12 MG
     Dates: start: 20231215
  25. METHOTREXATE SODIUM [Concomitant]
     Active Substance: METHOTREXATE SODIUM
     Dosage: 12 MG
     Dates: start: 20231205
  26. METAMIZOLE [Concomitant]
     Active Substance: METAMIZOLE
     Dosage: UNK
  27. BIOCARN [LEVOCARNITINE] [Concomitant]
     Dosage: UNK
  28. CHOLECALCIFEROL [Concomitant]
     Active Substance: CHOLECALCIFEROL
     Dosage: UNK
  29. ENOXAPARIN [Concomitant]
     Active Substance: ENOXAPARIN
     Dosage: UNK
  30. ACETAMINOPHEN [Concomitant]
     Active Substance: ACETAMINOPHEN
     Dosage: UNK
  31. VINCRISTINE [Concomitant]
     Active Substance: VINCRISTINE
     Dosage: 1.9 MG
     Dates: start: 20240108, end: 20240115
  32. VINCRISTINE [Concomitant]
     Active Substance: VINCRISTINE
     Dosage: 2 MG
     Dates: start: 20231121, end: 20231216
  33. LEUPROLIDE ACETATE [Concomitant]
     Active Substance: ISOPROPYL ALCOHOL\LEUPROLIDE ACETATE
     Dosage: UNK
  34. AMPHOTERICIN B [Concomitant]
     Active Substance: AMPHOTERICIN B
     Dosage: UNK
  35. ENALAPRIL [Concomitant]
     Active Substance: ENALAPRIL
     Dosage: UNK
  36. DAUNORUBICIN [Concomitant]
     Active Substance: DAUNORUBICIN
     Dosage: 40 MG
     Dates: start: 20231205
  37. DAUNORUBICIN [Concomitant]
     Active Substance: DAUNORUBICIN
     Dosage: 40 MG
     Dates: start: 20231121
  38. DAUNORUBICIN [Concomitant]
     Active Substance: DAUNORUBICIN
     Dosage: 40 MG
     Dates: start: 20231216
  39. DAUNORUBICIN [Concomitant]
     Active Substance: DAUNORUBICIN
     Dosage: 40 MG
     Dates: start: 20231129
  40. AMPHOTERICIN B [Concomitant]
     Active Substance: AMPHOTERICIN B
     Dosage: UNK
  41. LENOGRASTIM [Concomitant]
     Active Substance: LENOGRASTIM
     Dosage: UNK
  42. ONDANSETRON RATIO [Concomitant]
     Dosage: UNK

REACTIONS (2)
  - Necrosis [Not Recovered/Not Resolved]
  - Pathological fracture [Not Recovered/Not Resolved]

NARRATIVE: CASE EVENT DATE: 20240223
